FAERS Safety Report 5795735-2 (Version None)
Quarter: 2008Q2

REPORT INFORMATION
  Report Type: 
  Country: None (occurrence: None)
  Receive Date: 20080630
  Receipt Date: 20080610
  Transmission Date: 20081010
  Serious: No
  Sender: FDA-Public Use
  Company Number: US-BOEHRINGER INGELHEIM GMBH, GERMANY-2008-BP-09025BP

PATIENT
  Age: 77 Year
  Sex: Male

DRUGS (1)
  1. FLOMAX [Suspect]
     Indication: PROSTATE CANCER
     Route: 048
     Dates: start: 20080401, end: 20080607

REACTIONS (3)
  - LYMPHADENOPATHY [None]
  - PAIN IN EXTREMITY [None]
  - VARICOSE VEIN [None]
